FAERS Safety Report 6653424-6 (Version None)
Quarter: 2010Q1

REPORT INFORMATION
  Report Type: 
  Country: None (occurrence: None)
  Receive Date: 20100326
  Receipt Date: 20100318
  Transmission Date: 20100710
  Serious: Yes (Hospitalization, Other)
  Sender: FDA-Public Use
  Company Number: PHHO2010IL01394

PATIENT
  Sex: Female
  Weight: 17.9 kg

DRUGS (3)
  1. ACZ885 ACZ+ [Suspect]
     Indication: JUVENILE ARTHRITIS
     Dosage: UNK
     Dates: start: 20100111
  2. METHOTREXATE [Suspect]
  3. PREDNISONE TAB [Suspect]

REACTIONS (7)
  - ABDOMINAL PAIN [None]
  - FIBRIN D DIMER INCREASED [None]
  - HISTIOCYTOSIS HAEMATOPHAGIC [None]
  - PLEURAL EFFUSION [None]
  - PNEUMONIA [None]
  - PYREXIA [None]
  - THORACIC CAVITY DRAINAGE [None]
